FAERS Safety Report 14820459 (Version 1)
Quarter: 2018Q2

REPORT INFORMATION
  Report Type: Spontaneous
  Country: GB (occurrence: GB)
  Receive Date: 20180427
  Receipt Date: 20180427
  Transmission Date: 20180711
  Serious: Yes (Other)
  Sender: FDA-Public Use
  Company Number: GB-JNJFOC-20180432865

PATIENT
  Age: 58 Year
  Sex: Female
  Weight: 90 kg

DRUGS (3)
  1. FLUOCINOLONE ACETONIDE. [Concomitant]
     Active Substance: FLUOCINOLONE ACETONIDE
     Route: 065
  2. XARELTO [Suspect]
     Active Substance: RIVAROXABAN
     Indication: PULMONARY EMBOLISM
     Route: 048
     Dates: start: 20180306, end: 20180329
  3. ZEROBASE [Concomitant]
     Route: 065
     Dates: start: 20180306

REACTIONS (3)
  - Eczema [Unknown]
  - Rash [Recovering/Resolving]
  - Arthralgia [Unknown]

NARRATIVE: CASE EVENT DATE: 20180313
